FAERS Safety Report 15782380 (Version 2)
Quarter: 2019Q3

REPORT INFORMATION
  Report Type: Report from Study
  Country: GB (occurrence: GB)
  Receive Date: 20190102
  Receipt Date: 20190731
  Transmission Date: 20191004
  Serious: Yes (Death, Hospitalization)
  Sender: FDA-Public Use
  Company Number: GB-JNJFOC-20181217850

PATIENT
  Age: 56 Year
  Sex: Male
  Weight: 109 kg

DRUGS (2)
  1. STELARA [Suspect]
     Active Substance: USTEKINUMAB
     Indication: PSORIASIS
     Route: 058
     Dates: start: 20140226, end: 20170727
  2. ALCOHOL. [Suspect]
     Active Substance: ALCOHOL
     Indication: PRODUCT USED FOR UNKNOWN INDICATION
     Route: 065

REACTIONS (8)
  - Alcoholic liver disease [Fatal]
  - Acute pulmonary oedema [Unknown]
  - Hepatorenal syndrome [Unknown]
  - Fall [Unknown]
  - Peritonitis bacterial [Fatal]
  - Pneumonia [Unknown]
  - Respiratory failure [Unknown]
  - Fungal infection [Unknown]

NARRATIVE: CASE EVENT DATE: 2018
